FAERS Safety Report 8808528 (Version 1)
Quarter: 2012Q4

REPORT INFORMATION
  Report Type: 
  Country: PR (occurrence: PR)
  Receive Date: 20120926
  Receipt Date: 20120926
  Transmission Date: 20130627
  Serious: Yes (Other)
  Sender: FDA-Public Use
  Company Number: PR-GE HEALTHCARE MEDICAL DIAGNOSTICS-OMPQ-PR-1209S-0965

PATIENT
  Age: 40 Year
  Sex: Female
  Weight: 52.66 kg

DRUGS (4)
  1. OMNIPAQUE [Suspect]
     Indication: PRODUCT USED FOR UNKNOWN INDICATION
     Dates: start: 20120830, end: 20120830
  2. OMNIPAQUE [Suspect]
     Indication: DIAGNOSTIC PROCEDURE
  3. BENADRYL [Concomitant]
  4. MEDROL [Concomitant]

REACTIONS (3)
  - Pruritus [Recovered/Resolved]
  - Urticaria [Recovered/Resolved]
  - Skin burning sensation [Recovered/Resolved]
